FAERS Safety Report 8607498-3 (Version None)
Quarter: 2012Q3

REPORT INFORMATION
  Report Type: 
  Country: None (occurrence: None)
  Receive Date: 20120809
  Receipt Date: 20120809
  Transmission Date: 20120928
  Serious: No
  Sender: FDA-Public Use
  Company Number: None

PATIENT
  Age: 60 Year
  Sex: Male

DRUGS (2)
  1. LISINOPRIL [Suspect]
     Dosage: 20 MG, EVERY DAY, PO
     Route: 048
     Dates: start: 20111214, end: 20120215
  2. DICLOFENAC SODIUM [Suspect]
     Dosage: 75 MG, BID, PO
     Route: 048
     Dates: start: 20111214, end: 20120215

REACTIONS (3)
  - DRUG RASH WITH EOSINOPHILIA AND SYSTEMIC SYMPTOMS [None]
  - HEPATIC ENZYME ABNORMAL [None]
  - EOSINOPHILIA [None]
